FAERS Safety Report 7827004-0 (Version None)
Quarter: 2011Q4

REPORT INFORMATION
  Report Type: 
  Country: None (occurrence: None)
  Receive Date: 20111020
  Receipt Date: 20111018
  Transmission Date: 20120403
  Serious: No
  Sender: FDA-Public Use
  Company Number: US-B.I. PHARMACEUTICALS,INC./RIDGEFIELD-2011-BP-17562BP

PATIENT
  Sex: Male

DRUGS (10)
  1. UROXATRAL [Concomitant]
     Indication: PROSTATIC DISORDER
     Dosage: 0.4 MG
     Route: 048
     Dates: start: 20100101
  2. LIPITOR [Concomitant]
     Indication: BLOOD CHOLESTEROL ABNORMAL
     Dosage: 10 MG
     Route: 048
  3. PRADAXA [Suspect]
     Indication: ATRIAL FIBRILLATION
     Dosage: 300 MG
     Route: 048
     Dates: start: 20110703
  4. NEXIUM [Concomitant]
  5. ASPIRIN [Concomitant]
  6. FLOMAX [Concomitant]
  7. QUINAPRIL [Concomitant]
     Indication: CARDIAC DISORDER
     Dosage: 40 MG
     Route: 048
     Dates: start: 19960101
  8. LOPRESSOR [Concomitant]
     Indication: CARDIAC DISORDER
     Dosage: 25 MG
     Route: 048
     Dates: start: 19960101
  9. HYDROCHLOROTHIAZIDE [Concomitant]
     Indication: CARDIAC DISORDER
     Dosage: 10 MG
     Route: 048
     Dates: start: 19960101
  10. DIGOXIN [Concomitant]
     Dosage: 0.25 MG
     Route: 048

REACTIONS (2)
  - SENSATION OF FOREIGN BODY [None]
  - DYSPEPSIA [None]
